FAERS Safety Report 5016858-1 (Version None)
Quarter: 2006Q2

REPORT INFORMATION
  Report Type: 
  Country: None (occurrence: None)
  Receive Date: 20060526
  Receipt Date: 20060519
  Transmission Date: 20061013
  Serious: Yes (Hospitalization)
  Sender: FDA-Public Use
  Company Number: 2006RL000166

PATIENT
  Age: 57 Year
  Sex: Male

DRUGS (4)
  1. RYTHMOL [Suspect]
     Dosage: 1 DF; QD; PO
     Route: 048
  2. ASPIRIN [Suspect]
     Dosage: PO
     Route: 048
  3. HYDROCHLOROTHIAZIDE W/IRBESARTAN (KARVEA HCT) [Suspect]
     Dosage: PO
     Route: 048
     Dates: end: 20060220
  4. CHOLESTEROL COMPLEX (NO PREF. NAME) [Suspect]
     Dosage: PO
     Route: 048
     Dates: end: 20060220

REACTIONS (5)
  - ANAPHYLACTIC SHOCK [None]
  - BLOOD PRESSURE DECREASED [None]
  - EYELID OEDEMA [None]
  - FACE OEDEMA [None]
  - PRURITUS [None]
